FAERS Safety Report 7750287-2 (Version None)
Quarter: 2011Q3

REPORT INFORMATION
  Report Type: 
  Country: None (occurrence: None)
  Receive Date: 20110914
  Receipt Date: 20110901
  Transmission Date: 20111222
  Serious: Yes (Hospitalization)
  Sender: FDA-Public Use
  Company Number: US-ELI_LILLY_AND_COMPANY-US201010001439

PATIENT
  Sex: Female

DRUGS (8)
  1. DIURETICS [Concomitant]
  2. FORTEO [Suspect]
     Indication: OSTEOPOROSIS
     Dosage: 20 UG, QD
     Route: 065
     Dates: start: 20091001
  3. EXFORGE [Concomitant]
     Indication: BLOOD PRESSURE
  4. FORTEO [Suspect]
     Dosage: 20 UG, QD
     Route: 065
  5. BETA BLOCKING AGENTS [Concomitant]
  6. VITAMIN D [Concomitant]
  7. VITAMINS NOS [Concomitant]
  8. CALCIUM CARBONATE [Concomitant]

REACTIONS (3)
  - PAIN IN EXTREMITY [None]
  - THROMBOSIS [None]
  - OEDEMA PERIPHERAL [None]
